FAERS Safety Report 7456594-5 (Version None)
Quarter: 2011Q2

REPORT INFORMATION
  Report Type: 
  Country: None (occurrence: None)
  Receive Date: 20110503
  Receipt Date: 20110429
  Transmission Date: 20111010
  Serious: Yes (Other)
  Sender: FDA-Public Use
  Company Number: US-PFIZER INC-2011093179

PATIENT
  Sex: Female
  Weight: 52.608 kg

DRUGS (8)
  1. PAXIL [Concomitant]
     Indication: PANIC ATTACK
     Dosage: 10 MG, UNK
  2. RELAFEN [Concomitant]
     Indication: PAIN
     Dosage: 750 MG, 2X/DAY
  3. GABAPENTIN [Suspect]
     Indication: FIBROMYALGIA
  4. LYRICA [Suspect]
     Indication: FIBROMYALGIA
     Dosage: 50 MG, 3X/DAY
     Route: 048
     Dates: start: 20110301
  5. GABAPENTIN [Suspect]
     Indication: NEURALGIA
     Dosage: 300 MG, 3X/DAY
     Dates: start: 20040101, end: 20110420
  6. NEURONTIN [Suspect]
     Indication: NEURALGIA
     Dosage: 200 MG, UNK
  7. LEVOTHYROXINE [Concomitant]
     Indication: THYROID DISORDER
     Dosage: 75 UG, UNK
  8. LIOTHYRONINE [Concomitant]
     Dosage: 25 UG, UNK

REACTIONS (2)
  - PAIN [None]
  - MUSCULOSKELETAL CHEST PAIN [None]
